FAERS Safety Report 5318447-8 (Version None)
Quarter: 2007Q2

REPORT INFORMATION
  Report Type: 
  Country: None (occurrence: None)
  Receive Date: 20070430
  Receipt Date: 20070425
  Transmission Date: 20071010
  Serious: Yes (Death)
  Sender: FDA-Public Use
  Company Number: 167-C5013-07041300

PATIENT
  Age: 71 Year
  Sex: Male
  Weight: 80 kg

DRUGS (8)
  1. CC-5013 (LENALIDOMIDE) (CAPSULES) [Suspect]
     Indication: MULTIPLE MYELOMA
     Dosage: SEE IMAGE
     Route: 048
     Dates: start: 20070214
  2. CC-5013 (LENALIDOMIDE) (CAPSULES) [Suspect]
     Indication: MULTIPLE MYELOMA
     Dosage: SEE IMAGE
     Route: 048
     Dates: start: 20070315
  3. DEXAMETHASONE TAB [Suspect]
     Indication: MULTIPLE MYELOMA
     Dates: start: 20070201
  4. ALLOPURINOL [Concomitant]
  5. ASPIRIN [Concomitant]
  6. BENDROFLUMETHAZIDE (BENDROFLUMETHAZIDE) [Concomitant]
  7. LANSOPRAZOLE [Concomitant]
  8. PAMIDRONATE (PAMIDARONATE DISODIUM) [Concomitant]

REACTIONS (3)
  - NEUROPATHY PERIPHERAL [None]
  - NEUTROPENIC SEPSIS [None]
  - THROMBOCYTOPENIA [None]
